FAERS Safety Report 9731647 (Version 3)
Quarter: 2014Q1

REPORT INFORMATION
  Report Type: Report from Study
  Country: JP (occurrence: JP)
  Receive Date: 20131204
  Receipt Date: 20140127
  Transmission Date: 20141002
  Serious: Yes (Other)
  Sender: FDA-Public Use
  Company Number: JP-009507513-1305JPN007555

PATIENT
  Age: 34 Year
  Sex: Female
  Weight: 43 kg

DRUGS (5)
  1. GANIRELIX ACETATE [Suspect]
     Indication: PREVENTION OF PREMATURE OVULATION
     Dosage: 0.25 MG, QD
     Route: 058
     Dates: start: 20120224, end: 20120226
  2. FOLLISTIM [Suspect]
     Indication: IN VITRO FERTILISATION
     Dosage: DOSE: 200(UNDER 1000 UNIT), QD
     Route: 058
     Dates: start: 20120218, end: 20120221
  3. MENOTROPINS [Suspect]
     Indication: IN VITRO FERTILISATION
     Dosage: TOTAL DAILY DOSE: 150(UNDER 1000 UNIT)
     Route: 030
     Dates: start: 20120222, end: 20120226
  4. MENOTROPINS [Suspect]
     Dosage: DOSE: 75 (UNDER 1000UNIT), QD
     Route: 030
     Dates: start: 20120227, end: 20120227
  5. GONADOTROPIN, CHORIONIC [Suspect]
     Indication: OVULATION INDUCTION
     Dosage: DOSE: 3 (THOUSAND-MILLION UNIT), QD
     Route: 065
     Dates: start: 20120227, end: 20120227

REACTIONS (3)
  - Abortion [Recovered/Resolved]
  - Ovarian hyperstimulation syndrome [Recovered/Resolved]
  - Maternal exposure during pregnancy [Recovered/Resolved]
